FAERS Safety Report 4887734-X (Version None)
Quarter: 2006Q1

REPORT INFORMATION
  Report Type: 
  Country: None (occurrence: None)
  Receive Date: 20060118
  Receipt Date: 20060110
  Transmission Date: 20060701
  Serious: Yes (Death)
  Sender: FDA-Public Use
  Company Number: 2005BI021712

PATIENT
  Age: 26 Year
  Sex: Male

DRUGS (2)
  1. AVONEX [Suspect]
     Indication: MULTIPLE SCLEROSIS
     Dosage: 30 UG;QW;IM
     Route: 030
     Dates: start: 20030422, end: 20031226
  2. AVONEX [Suspect]
     Indication: MULTIPLE SCLEROSIS
     Dosage: 30 UG;QW;IM
     Route: 030
     Dates: start: 20040303, end: 20050101

REACTIONS (7)
  - ABNORMAL BEHAVIOUR [None]
  - ACCIDENT [None]
  - ARTHRALGIA [None]
  - DEPRESSION [None]
  - MANIA [None]
  - PAIN [None]
  - PERSONALITY CHANGE [None]
